FAERS Safety Report 25183072 (Version 1)
Quarter: 2025Q2

REPORT INFORMATION
  Report Type: Spontaneous
  Country: US (occurrence: US)
  Receive Date: 20250410
  Receipt Date: 20250410
  Transmission Date: 20250717
  Serious: Yes (Death, Other)
  Sender: PROCTER AND GAMBLE
  Company Number: US-PROCTER+GAMBLE-PH25002664

PATIENT
  Age: 44 Year
  Sex: Female

DRUGS (14)
  1. ACETAMINOPHEN [Suspect]
     Active Substance: ACETAMINOPHEN
  2. IBUPROFEN [Suspect]
     Active Substance: IBUPROFEN
  3. KETAMINE [Suspect]
     Active Substance: KETAMINE
  4. NORKETAMINE [Suspect]
     Active Substance: NORKETAMINE
  5. MIDOMAFETAMINE [Suspect]
     Active Substance: MIDOMAFETAMINE
  6. TENAMFETAMINE [Suspect]
     Active Substance: TENAMFETAMINE
  7. COCAINE [Suspect]
     Active Substance: COCAINE
  8. ALPRAZOLAM [Suspect]
     Active Substance: ALPRAZOLAM
  9. CAFFEINE [Suspect]
     Active Substance: CAFFEINE
  10. PHENACETIN [Suspect]
     Active Substance: PHENACETIN
  11. PYRILAMINE [Suspect]
     Active Substance: PYRILAMINE
  12. TRAZODONE [Suspect]
     Active Substance: TRAZODONE HYDROCHLORIDE
  13. KETOROLAC [Suspect]
     Active Substance: KETOROLAC TROMETHAMINE
  14. PAROXETINE [Suspect]
     Active Substance: PAROXETINE

REACTIONS (5)
  - Toxicity to various agents [Fatal]
  - Injury [Fatal]
  - Completed suicide [Fatal]
  - Drug abuse [Fatal]
  - Postmortem blood drug level abnormal [Fatal]
